FAERS Safety Report 8199120-8 (Version None)
Quarter: 2012Q1

REPORT INFORMATION
  Report Type: 
  Country: None (occurrence: None)
  Receive Date: 20120309
  Receipt Date: 20120227
  Transmission Date: 20120608
  Serious: Yes (Other)
  Sender: FDA-Public Use
  Company Number: JP-PFIZER INC-2011194268

PATIENT
  Age: 68 Year
  Sex: Male
  Weight: 57.5 kg

DRUGS (33)
  1. KW-0761 [Suspect]
     Indication: ADULT T-CELL LYMPHOMA/LEUKAEMIA
     Dosage: 1.0 MG/KG X 1/2 WEEK
     Route: 041
     Dates: start: 20110426, end: 20110727
  2. ETOPOSIDE [Suspect]
     Indication: ADULT T-CELL LYMPHOMA/LEUKAEMIA
     Dosage: 100 MG/M2 X 1/4 WEEK
     Route: 041
     Dates: start: 20110509, end: 20110728
  3. HICEE [Concomitant]
     Dosage: 1500 MG, UNK
     Route: 048
     Dates: start: 20110808
  4. DOXORUBICIN HYDROCHLORIDE [Suspect]
     Dosage: 30 MG/M2 X 1/4WEEK
     Route: 041
     Dates: start: 20110502, end: 20110712
  5. FILDESIN [Suspect]
     Indication: ADULT T-CELL LYMPHOMA/LEUKAEMIA
     Dosage: 2.4 MG/M2 X 1/4 WEEK
     Route: 041
     Dates: start: 20110509, end: 20110728
  6. PURSENNID [Concomitant]
     Dosage: 24 MG, UNK
     Route: 048
     Dates: start: 20110705
  7. ADONA [Concomitant]
     Dosage: 90 MG, UNK
     Route: 048
     Dates: start: 20110808
  8. SLOW-K [Concomitant]
     Dosage: 3600 MG, UNK
     Route: 048
     Dates: start: 20110815
  9. MYSER [Concomitant]
     Dosage: UNK
     Dates: start: 20110624
  10. RANIMUSTINE [Suspect]
     Indication: ADULT T-CELL LYMPHOMA/LEUKAEMIA
     Dosage: 60 MG/M2 X 1/4 WEEK
     Route: 041
     Dates: start: 20110502, end: 20110712
  11. ARMODAFINIL [Concomitant]
     Dosage: 100 MG, UNK
     Route: 048
     Dates: start: 20110425
  12. VINCRISTINE SULFATE [Suspect]
     Indication: ADULT T-CELL LYMPHOMA/LEUKAEMIA
     Dosage: 1 MG/M2 X 1/4 WEEK
     Route: 041
     Dates: start: 20110425, end: 20110705
  13. PARAPLATIN AQ [Suspect]
     Indication: ADULT T-CELL LYMPHOMA/LEUKAEMIA
     Dosage: 250 MG/M2 X 1/4 WEEK
     Route: 041
     Dates: start: 20110509, end: 20110728
  14. CYTARABINE [Suspect]
     Indication: ADULT T-CELL LYMPHOMA/LEUKAEMIA
     Dosage: 40 MG X 1/8 WEEK
     Route: 037
     Dates: start: 20110531
  15. PREDNISOLONE [Suspect]
     Indication: RASH
     Dosage: 15 MG, UNK
     Route: 048
     Dates: start: 20110818
  16. LENDORMIN [Concomitant]
     Dosage: 0.25 MG, UNK
     Route: 048
     Dates: start: 20110425
  17. POSTERISAN [Concomitant]
     Dosage: UNK
     Dates: start: 20110517
  18. CYCLOPHOSPHAMIDE [Suspect]
     Indication: ADULT T-CELL LYMPHOMA/LEUKAEMIA
     Dosage: 350 MG/M2 X 1/4 WEEK
     Route: 041
     Dates: start: 20110425, end: 20110705
  19. PREDNISOLONE [Suspect]
     Dosage: 40 MG/M2 X 1/4 WEEK
     Route: 048
     Dates: start: 20110502, end: 20110712
  20. PREDNISOLONE SODIUM SUCCINATE INJ [Suspect]
     Indication: ADULT T-CELL LYMPHOMA/LEUKAEMIA
     Dosage: 10 MG X 1/8 WEEK
     Route: 037
     Dates: start: 20110531
  21. ASPIRIN [Concomitant]
     Dosage: 100 MG, UNK
     Route: 048
     Dates: start: 20110524
  22. KETOPROFEN [Concomitant]
     Dosage: UNK
     Dates: start: 20110807
  23. EPINASTINE HYDROCHLORIDE [Concomitant]
     Dosage: 20 MG, UNK
     Route: 048
     Dates: start: 20110814
  24. PREDNISOLONE [Suspect]
     Dosage: 40 MG/M2 X 1/4 WEEK
     Route: 048
     Dates: start: 20110509, end: 20110728
  25. OMEPRAZOLE [Concomitant]
     Dosage: 20 MG, UNK
     Route: 048
     Dates: start: 20110425
  26. COTRIM [Concomitant]
     Dosage: 1 DF
     Route: 048
     Dates: start: 20110425
  27. METHOTREXATE SODIUM [Suspect]
     Indication: ADULT T-CELL LYMPHOMA/LEUKAEMIA
     Dosage: 15 MG X 1/8 WEEK
     Route: 037
     Dates: start: 20110531
  28. DOXORUBICIN HYDROCHLORIDE [Suspect]
     Indication: ADULT T-CELL LYMPHOMA/LEUKAEMIA
     Dosage: 40 MG/M2 X 1/4WEEK
     Route: 041
     Dates: start: 20110425, end: 20110705
  29. PREDNISOLONE [Suspect]
     Indication: ADULT T-CELL LYMPHOMA/LEUKAEMIA
     Dosage: 40 MG/M2 X 1/4 WEEK
     Route: 048
     Dates: start: 20110425, end: 20110705
  30. MAGMITT [Concomitant]
     Dosage: 990 MG, UNK
     Route: 048
     Dates: start: 20110425
  31. TARGOCID [Concomitant]
     Dosage: 400 MG, UNK
     Route: 041
     Dates: start: 20110804, end: 20110815
  32. MAXIPIME [Concomitant]
     Dosage: 4 G, UNK
     Route: 041
     Dates: start: 20110804, end: 20110811
  33. GLUCONSAN K [Concomitant]
     Dosage: 24 MEQ, UNK
     Route: 048
     Dates: start: 20110817

REACTIONS (43)
  - WEIGHT DECREASED [None]
  - EAR DISCOMFORT [None]
  - PAROTID GLAND ENLARGEMENT [None]
  - BACTERAEMIA [None]
  - BLOOD BILIRUBIN INCREASED [None]
  - OEDEMA PERIPHERAL [None]
  - PURPURA [None]
  - LEUKOPENIA [None]
  - NEUTROPENIA [None]
  - FEBRILE NEUTROPENIA [None]
  - HYPERGLYCAEMIA [None]
  - ALOPECIA [None]
  - BLOOD PHOSPHORUS DECREASED [None]
  - OROPHARYNGEAL PAIN [None]
  - DECREASED APPETITE [None]
  - PRODUCTIVE COUGH [None]
  - BLOOD SODIUM DECREASED [None]
  - BLOOD CALCIUM DECREASED [None]
  - NAUSEA [None]
  - ARTHRALGIA [None]
  - UPPER RESPIRATORY TRACT INFECTION [None]
  - BLOOD ALBUMIN DECREASED [None]
  - PYREXIA [None]
  - DEHYDRATION [None]
  - DRY EYE [None]
  - BLOOD LACTATE DEHYDROGENASE INCREASED [None]
  - ENCEPHALITIS HERPES [None]
  - ENCEPHALITIS VIRAL [None]
  - ERYTHEMA [None]
  - LYMPHOPENIA [None]
  - CYTOMEGALOVIRUS VIRAEMIA [None]
  - ALANINE AMINOTRANSFERASE INCREASED [None]
  - BLOOD UREA INCREASED [None]
  - BLOOD CREATININE INCREASED [None]
  - OEDEMA [None]
  - STRESS ULCER [None]
  - BLOOD URIC ACID INCREASED [None]
  - VOMITING [None]
  - DIARRHOEA [None]
  - DERMATITIS CONTACT [None]
  - THROMBOCYTOPENIA [None]
  - BLOOD POTASSIUM INCREASED [None]
  - THIRST [None]
